FAERS Safety Report 6128529-9 (Version None)
Quarter: 2009Q1

REPORT INFORMATION
  Report Type: 
  Country: None (occurrence: None)
  Receive Date: 20090323
  Receipt Date: 20090309
  Transmission Date: 20090719
  Serious: Yes (Other)
  Sender: FDA-Public Use
  Company Number: JP-675

PATIENT
  Sex: Female
  Weight: 61 kg

DRUGS (3)
  1. NIZORAL [Suspect]
     Indication: DERMATOPHYTOSIS
     Route: 048
  2. ACTRAPID HM [Concomitant]
     Indication: DIABETES MELLITUS
     Route: 065
  3. PROTOPHASE [Concomitant]
     Indication: DIABETES MELLITUS
     Route: 065

REACTIONS (2)
  - ABORTION SPONTANEOUS [None]
  - DRUG EXPOSURE DURING PREGNANCY [None]
